FAERS Safety Report 21170327 (Version 1)
Quarter: 2022Q3

REPORT INFORMATION
  Report Type: Report from Study
  Country: GB (occurrence: GB)
  Receive Date: 20220804
  Receipt Date: 20220804
  Transmission Date: 20221026
  Serious: Yes (Death, Hospitalization, Other)
  Sender: FDA-Public Use
  Company Number: GB-CELLTRION INC.-2019GB028864

PATIENT

DRUGS (187)
  1. TRASTUZUMAB [Suspect]
     Active Substance: TRASTUZUMAB
     Indication: Breast cancer metastatic
     Dosage: 525 MG, EVERY 3 WEEKS, LOADING DOSE
     Route: 041
     Dates: start: 20160225, end: 20160225
  2. TRASTUZUMAB [Suspect]
     Active Substance: TRASTUZUMAB
     Indication: HER2 positive breast cancer
     Dosage: 400 MG, EVERY 3 WEEKS, MAINTENANCE DOSE, MODIFIED DUE TO DECREASE IN WEIGHT (DOSE FORM: 356)
     Route: 042
     Dates: start: 20160225, end: 20160617
  3. TRASTUZUMAB [Suspect]
     Active Substance: TRASTUZUMAB
     Dosage: 350 MILLIGRAM, Q3WK
     Route: 042
     Dates: start: 20160707, end: 20180822
  4. TRASTUZUMAB [Suspect]
     Active Substance: TRASTUZUMAB
     Dosage: 350 MILLIGRAM, Q3WK (PHARMACEUTICAL DOSE FORM: 230)
     Route: 042
     Dates: start: 20160707, end: 20160822
  5. TRASTUZUMAB [Suspect]
     Active Substance: TRASTUZUMAB
     Dosage: 220 MILLIGRAM, EVERY 2 WEEKS (PHARMACEUTICAL DOSE FORM: 293)
     Route: 042
     Dates: start: 20180928, end: 20190315
  6. TRASTUZUMAB [Suspect]
     Active Substance: TRASTUZUMAB
     Dosage: 220 MILLIGRAM, 3 WEEK (PHARMACEUTICAL DOSAGE FORM: 230)
     Route: 042
     Dates: start: 20180928
  7. TRASTUZUMAB [Suspect]
     Active Substance: TRASTUZUMAB
     Dosage: 400 MILLIGRAM, Q3WK (MAINTAINENCE DOSE)
     Route: 042
     Dates: start: 20160617
  8. NERATINIB [Suspect]
     Active Substance: NERATINIB
     Indication: HER2 positive breast cancer
     Dosage: 240 MILLIGRAM, QD
     Route: 048
     Dates: start: 20190403
  9. TAMOXIFEN [Suspect]
     Active Substance: TAMOXIFEN
     Indication: Breast cancer metastatic
     Dosage: 20 MILLIGRAM, ONCE A DAY
     Route: 048
     Dates: start: 20180704, end: 20180915
  10. TAMOXIFEN [Suspect]
     Active Substance: TAMOXIFEN
     Indication: HER2 positive breast cancer
     Dosage: UNK
     Route: 065
  11. TAXOTERE [Suspect]
     Active Substance: DOCETAXEL
     Indication: HER2 positive breast cancer
     Dosage: 65 MILLIGRAM, Q3WK
     Route: 042
     Dates: start: 20160226, end: 20160226
  12. TAXOTERE [Suspect]
     Active Substance: DOCETAXEL
     Indication: Breast cancer metastatic
     Dosage: 65 MG, EVERY 3 WEEKS
     Route: 042
     Dates: start: 20180226, end: 20180226
  13. TAXOTERE [Suspect]
     Active Substance: DOCETAXEL
     Dosage: UNK
     Route: 065
  14. ADO-TRASTUZUMAB EMTANSINE [Suspect]
     Active Substance: ADO-TRASTUZUMAB EMTANSINE
     Indication: Breast cancer metastatic
     Dosage: 220 MILLIGRAM, Q3WK
     Route: 042
     Dates: start: 20180928, end: 20190315
  15. ADO-TRASTUZUMAB EMTANSINE [Suspect]
     Active Substance: ADO-TRASTUZUMAB EMTANSINE
     Indication: HER2 positive breast cancer
     Dosage: DOSE FORM: 230
     Route: 065
  16. ADO-TRASTUZUMAB EMTANSINE [Suspect]
     Active Substance: ADO-TRASTUZUMAB EMTANSINE
     Dosage: UNK
  17. ADO-TRASTUZUMAB EMTANSINE [Suspect]
     Active Substance: ADO-TRASTUZUMAB EMTANSINE
     Dosage: 220 MG, EVERY 3 WEEKS (DOSE FORM: 230)
     Route: 042
     Dates: start: 20180928, end: 20190315
  18. FEMARA [Suspect]
     Active Substance: LETROZOLE
     Indication: HER2 positive breast cancer
     Dosage: 2.5 MG, DAILY, DISCONTINUED DUE TO DISEASE PROGRESSION AND FURTHER ANTICANCER TREATMENT
     Route: 048
     Dates: start: 20160413, end: 20180704
  19. FEMARA [Suspect]
     Active Substance: LETROZOLE
     Dosage: UNK
     Route: 065
  20. PERTUZUMAB [Suspect]
     Active Substance: PERTUZUMAB
     Indication: Breast cancer metastatic
     Dosage: 840 MILLIGRAM, Q3WK (LOADING DOSE)
     Route: 042
     Dates: start: 20160225, end: 20160225
  21. PERTUZUMAB [Suspect]
     Active Substance: PERTUZUMAB
     Indication: HER2 positive breast cancer
     Dosage: 420 MILLIGRAM, Q3WK (MAINTAINENCE DOSE)
     Route: 042
     Dates: start: 20160225, end: 20180704
  22. PERTUZUMAB [Suspect]
     Active Substance: PERTUZUMAB
     Indication: Breast cancer metastatic
     Dosage: UNK
     Route: 065
  23. PERTUZUMAB [Suspect]
     Active Substance: PERTUZUMAB
     Indication: HER2 positive breast cancer
     Dosage: UNK
  24. PERTUZUMAB [Suspect]
     Active Substance: PERTUZUMAB
     Dosage: 420 MG, EVERY 3 WEEKS, MAINTAINENCE DOSE, DISCONTINUED DUE TO DISEASE PROGRESSION AND FURTHER ANTICA
     Route: 042
     Dates: start: 20160225, end: 20180704
  25. PERTUZUMAB [Suspect]
     Active Substance: PERTUZUMAB
     Dosage: 840 MG, EVERY 3 WEEKS LOADING DOSE (PHARMACEUTICAL DOSE FORM: 230)
     Route: 042
     Dates: start: 20160225, end: 20160225
  26. PERTUZUMAB [Suspect]
     Active Substance: PERTUZUMAB
     Dosage: 420 MILLIGRAM, 1 EVERY 3 WEEK (PHARMACEUTICAL DOSAGE FORM: 230)
     Route: 042
     Dates: start: 20160225, end: 20180703
  27. PERTUZUMAB [Suspect]
     Active Substance: PERTUZUMAB
     Dosage: 420 MILLIGRAM, 1 EVERY 3 WEEK INTERVAL (PHARMACEUTICAL DOSAGE FORM: 230)
     Route: 042
     Dates: start: 20170523
  28. DOCETAXEL [Suspect]
     Active Substance: DOCETAXEL
     Indication: Breast cancer metastatic
     Dosage: 65 MILLIGRAM, Q3WK
     Route: 042
     Dates: start: 20160226, end: 20160226
  29. DOCETAXEL [Suspect]
     Active Substance: DOCETAXEL
     Dosage: UNK
  30. LETROZOLE [Suspect]
     Active Substance: LETROZOLE
     Indication: HER2 positive breast cancer
     Dosage: 2.5 MILLIGRAM, QD
     Route: 048
     Dates: start: 20160413, end: 20180704
  31. LETROZOLE [Suspect]
     Active Substance: LETROZOLE
     Indication: Breast cancer metastatic
     Dosage: UNK
     Route: 065
  32. CINACALCET HYDROCHLORIDE [Suspect]
     Active Substance: CINACALCET HYDROCHLORIDE
     Indication: Hypercalcaemia of malignancy
     Dosage: 30 MILLIGRAM, QD (PHARMACEUTICAL DOSAGE FORM: 245)
     Route: 048
     Dates: start: 20190413, end: 201907
  33. XGEVA [Suspect]
     Active Substance: DENOSUMAB
     Indication: Product used for unknown indication
     Dosage: 120 MILLIGRAM, EVERY 3 TO 4 WEEKS, (DOSAGE FORM: 231)
     Route: 058
     Dates: start: 20180110, end: 20190426
  34. TAMOXIFEN CITRATE [Suspect]
     Active Substance: TAMOXIFEN CITRATE
     Indication: HER2 positive breast cancer
     Dosage: 20 MILLIGRAM, QD
     Route: 048
     Dates: start: 20180704, end: 20180915
  35. TAMOXIFEN CITRATE [Suspect]
     Active Substance: TAMOXIFEN CITRATE
     Indication: Breast cancer metastatic
     Dosage: UNK
  36. TAMOXIFEN CITRATE [Suspect]
     Active Substance: TAMOXIFEN CITRATE
     Dosage: 1480 MILLIGRAM
     Route: 048
  37. CANDESARTAN [Concomitant]
     Active Substance: CANDESARTAN
     Dosage: 8 MILLIGRAM, QD
     Route: 048
  38. CANDESARTAN [Concomitant]
     Active Substance: CANDESARTAN
     Dosage: UNK
  39. CANDESARTAN [Concomitant]
     Active Substance: CANDESARTAN
     Indication: Product used for unknown indication
     Dosage: 8 MILLIGRAM, QD (PHARMACEUTICAL DOSE FORM: 245)
     Route: 048
  40. MACROGOL COMP [Concomitant]
     Dosage: UNK, BID
     Route: 048
  41. MACROGOL COMP [Concomitant]
     Dosage: 2 UNK, QD (SACHET)
     Route: 065
  42. POLYETHYLENE GLYCOLS [Concomitant]
     Active Substance: POLYETHYLENE GLYCOLS
     Indication: Product used for unknown indication
     Dosage: 2 UNK, QD (SACHET)
     Route: 065
  43. POLYETHYLENE GLYCOLS [Concomitant]
     Active Substance: POLYETHYLENE GLYCOLS
     Dosage: UNK, EVERY 0.5 DAYS (SACHET)
     Route: 065
  44. POLYETHYLENE GLYCOLS [Concomitant]
     Active Substance: POLYETHYLENE GLYCOLS
     Dosage: 2 UNK UNK, ONCE A DAY
     Route: 065
  45. POLYETHYLENE GLYCOLS [Concomitant]
     Active Substance: POLYETHYLENE GLYCOLS
     Dosage: UNK
     Route: 048
  46. POLYETHYLENE GLYCOLS [Concomitant]
     Active Substance: POLYETHYLENE GLYCOLS
     Dosage: UNK, BID
  47. POLYETHYLENE GLYCOLS [Concomitant]
     Active Substance: POLYETHYLENE GLYCOLS
     Dosage: UNK UNK, UNK
  48. POLYETHYLENE GLYCOLS [Concomitant]
     Active Substance: POLYETHYLENE GLYCOLS
     Dosage: UNK
  49. POLYETHYLENE GLYCOLS [Concomitant]
     Active Substance: POLYETHYLENE GLYCOLS
     Dosage: 2 DAILY, SACHET
     Route: 065
  50. POLYETHYLENE GLYCOLS [Concomitant]
     Active Substance: POLYETHYLENE GLYCOLS
     Dosage: SACHET EVERY 0.5 DAY
     Route: 065
  51. POLYETHYLENE GLYCOLS [Concomitant]
     Active Substance: POLYETHYLENE GLYCOLS
     Dosage: 2 UNK, QD (SACHET)
     Route: 065
  52. LOPERAMIDE [Concomitant]
     Active Substance: LOPERAMIDE
     Indication: Prophylaxis
     Dosage: 2 MILLIGRAM, AS NECESSARY (DOSE FORM: 245)
     Route: 048
     Dates: start: 20160225
  53. LOPERAMIDE [Concomitant]
     Active Substance: LOPERAMIDE
     Dosage: 4 MG, PRN
     Route: 048
     Dates: start: 201607, end: 201703
  54. LOPERAMIDE [Concomitant]
     Active Substance: LOPERAMIDE
     Dosage: UNK, UNK
  55. LOPERAMIDE [Concomitant]
     Active Substance: LOPERAMIDE
     Dosage: UNK
  56. LOPERAMIDE [Concomitant]
     Active Substance: LOPERAMIDE
     Indication: Product used for unknown indication
     Dosage: 2 MG, AS NEEDED (PHARMACEUTICAL DOSE FORM: 245)
     Route: 048
     Dates: start: 20160225
  57. LOPERAMIDE [Concomitant]
     Active Substance: LOPERAMIDE
     Dosage: UNK UNK, UNK
  58. LOPERAMIDE [Concomitant]
     Active Substance: LOPERAMIDE
     Dosage: 4 MG, PRN
     Route: 048
     Dates: start: 201607, end: 201703
  59. ZOLEDRONIC ACID [Concomitant]
     Active Substance: ZOLEDRONIC ACID
     Indication: Prophylaxis
     Dosage: 3.3 MILLIGRAM, QMO
     Route: 042
     Dates: start: 20160226
  60. ZOLEDRONIC ACID [Concomitant]
     Active Substance: ZOLEDRONIC ACID
     Dosage: 3.3 MILLIGRAM, QMO
     Route: 042
     Dates: start: 20160226, end: 20170323
  61. ZOLEDRONIC ACID [Concomitant]
     Active Substance: ZOLEDRONIC ACID
     Dosage: 3.5 MILLIGRAM, EVERY 3-4WEEKS FOR 9 CYCLES THEN 3 MONTS
     Route: 042
     Dates: start: 20160414, end: 20170112
  62. ZOLEDRONIC ACID [Concomitant]
     Active Substance: ZOLEDRONIC ACID
     Dosage: 3.3 MILLIGRAM
     Route: 042
     Dates: start: 20170209, end: 20170323
  63. ZOLEDRONIC ACID [Concomitant]
     Active Substance: ZOLEDRONIC ACID
     Dosage: 3 MILLIGRAM
     Route: 042
     Dates: start: 20170628, end: 20171220
  64. ZOLEDRONIC ACID [Concomitant]
     Active Substance: ZOLEDRONIC ACID
     Dosage: 3.5 MILLIGRAM
     Route: 042
     Dates: start: 20190408, end: 20190408
  65. ZOLEDRONIC ACID [Concomitant]
     Active Substance: ZOLEDRONIC ACID
     Dosage: 3 MILLIGRAM
     Route: 042
     Dates: start: 20190510, end: 20190529
  66. RIVAROXABAN [Concomitant]
     Active Substance: RIVAROXABAN
     Indication: Pulmonary embolism
     Dosage: UNK, QD
     Route: 048
     Dates: start: 20181128
  67. RIVAROXABAN [Concomitant]
     Active Substance: RIVAROXABAN
     Indication: Product used for unknown indication
     Dosage: UNK, QD (PHARMACEUTICAL DOSE FORM: 245)
     Route: 048
     Dates: start: 20181128
  68. RIVAROXABAN [Concomitant]
     Active Substance: RIVAROXABAN
     Dosage: UNK, QD
     Route: 048
     Dates: start: 20181128
  69. COCODAMOL [Concomitant]
     Active Substance: ACETAMINOPHEN\CODEINE PHOSPHATE
     Indication: Back pain
     Dosage: 2 TABLET, PRN
     Route: 048
     Dates: start: 20160707
  70. COCODAMOL [Concomitant]
     Active Substance: ACETAMINOPHEN\CODEINE PHOSPHATE
     Dosage: 1 DOSAGE FORM, AS NECESSARY
     Route: 048
  71. COCODAMOL [Concomitant]
     Active Substance: ACETAMINOPHEN\CODEINE PHOSPHATE
     Dosage: 1 DF1 DOSAGE FORM, AS NECESSARY (PHARMACEUTICAL DOSAGE FORM: 245)
     Route: 048
  72. COCODAMOL [Concomitant]
     Active Substance: ACETAMINOPHEN\CODEINE PHOSPHATE
     Dosage: 1 DOSAGE FORM, AS NECESSARY (PHARMACEUTICAL DOSAGE FORM: 245)
     Route: 048
  73. DOMPERIDONE [Concomitant]
     Active Substance: DOMPERIDONE
     Dosage: 10 MG, EVERY 0.33 DAYS
     Route: 048
     Dates: start: 20160225
  74. DOMPERIDONE [Concomitant]
     Active Substance: DOMPERIDONE
     Indication: Product used for unknown indication
     Dosage: 30 MILLIGRAM, QD (PHARMACEUTICAL DOSAGE FORM: 245)
     Route: 048
     Dates: start: 20160225
  75. DOMPERIDONE [Concomitant]
     Active Substance: DOMPERIDONE
     Dosage: 10 MILLIGRAM, EVERY 0.33 DAYS
     Route: 048
     Dates: start: 20160225
  76. TRAMADOL HYDROCHLORIDE [Concomitant]
     Active Substance: TRAMADOL HYDROCHLORIDE
     Indication: Product used for unknown indication
     Dosage: 50 MG, 4X/DAY (EVERY 0.25 DAY)
     Route: 048
     Dates: start: 20160217
  77. TRAMADOL HYDROCHLORIDE [Concomitant]
     Active Substance: TRAMADOL HYDROCHLORIDE
     Dosage: 200 MILLIGRAM, QD (PHARMACEUTICAL DOSAGE FORM: 245)
     Route: 048
     Dates: start: 20160217
  78. TRAMADOL HYDROCHLORIDE [Concomitant]
     Active Substance: TRAMADOL HYDROCHLORIDE
     Dosage: 50 MG EVERY 0.25 DAY
     Route: 048
     Dates: start: 20160217
  79. DEXAMETHASONE [Concomitant]
     Active Substance: DEXAMETHASONE
     Indication: Prophylaxis
     Dosage: 16 MILLIGRAM, QD
     Route: 048
     Dates: start: 20160225
  80. DEXAMETHASONE [Concomitant]
     Active Substance: DEXAMETHASONE
     Dosage: 8 MG, EVERY 0.5 DAY
     Route: 048
     Dates: start: 20160225
  81. DEXAMETHASONE [Concomitant]
     Active Substance: DEXAMETHASONE
     Indication: Product used for unknown indication
     Dosage: 16 MILLIGRAM, QD (PHARMACEUTICAL DOSAGE FORM: 245)
     Route: 048
     Dates: start: 20160225
  82. ATORVASTATIN [Concomitant]
     Active Substance: ATORVASTATIN
     Dosage: 20 MILLIGRAM, QD
     Route: 048
  83. ATORVASTATIN [Concomitant]
     Active Substance: ATORVASTATIN
     Dosage: UNK, QD
  84. ATORVASTATIN [Concomitant]
     Active Substance: ATORVASTATIN
     Indication: Product used for unknown indication
     Dosage: 20 MILLIGRAM, ONCE A DAY (PHARMACEUTICAL DOSE FORM: 245)
     Route: 048
  85. ATORVASTATIN [Concomitant]
     Active Substance: ATORVASTATIN
     Dosage: UNK
  86. ATORVASTATIN [Concomitant]
     Active Substance: ATORVASTATIN
     Dosage: 20 MG, DAILY
     Route: 048
  87. CALCIUM\CHOLECALCIFEROL [Concomitant]
     Active Substance: CALCIUM\CHOLECALCIFEROL
     Indication: Product used for unknown indication
     Dosage: 2 DOSAGE FORM, QD
     Route: 048
     Dates: start: 20160323
  88. METOCLOPRAMIDE [Concomitant]
     Active Substance: METOCLOPRAMIDE
     Indication: Product used for unknown indication
     Dosage: 10 MILLIGRAM, 3 TIMES A DAY (30 MILLIGRAM, ONCE A DAY) (PHARMACEUTICAL DOSAGE FORM: 245)
     Route: 048
  89. METOCLOPRAMIDE [Concomitant]
     Active Substance: METOCLOPRAMIDE
     Dosage: UNK
  90. METOCLOPRAMIDE [Concomitant]
     Active Substance: METOCLOPRAMIDE
     Dosage: UNK
  91. METOCLOPRAMIDE [Concomitant]
     Active Substance: METOCLOPRAMIDE
     Dosage: 30 MILLIGRAM, QD (PHARMACEUTICAL DOSAGE FORM: 245)
     Route: 048
  92. METOCLOPRAMIDE [Concomitant]
     Active Substance: METOCLOPRAMIDE
     Dosage: 10 MG EVERY 0.33 DAY
     Route: 048
  93. SITAGLIPTIN [Concomitant]
     Active Substance: SITAGLIPTIN
     Dosage: 100 MILLIGRAM, ONCE A DAY
     Route: 048
  94. SITAGLIPTIN [Concomitant]
     Active Substance: SITAGLIPTIN
     Dosage: UNK
  95. SITAGLIPTIN [Concomitant]
     Active Substance: SITAGLIPTIN
     Indication: Product used for unknown indication
     Dosage: 100 MILLIGRAM, QD (PHARMACEUTICAL DOSE FORM: 245)
     Route: 048
  96. SITAGLIPTIN [Concomitant]
     Active Substance: SITAGLIPTIN
     Dosage: UNK
  97. SITAGLIPTIN [Concomitant]
     Active Substance: SITAGLIPTIN
     Dosage: 100 MILLIGRAM, ONCE A DAY (PHARMACEUTICAL DOSAGE DOSAGE FORM: 245)
     Route: 048
  98. CHLORHEXIDINE GLUCONATE [Concomitant]
     Active Substance: CHLORHEXIDINE GLUCONATE
     Indication: Prophylaxis
     Dosage: 0.8 PERCENT, QD (0.2 PERCENT 0.25 DAY) (DOSE FORM: 135))
     Route: 048
     Dates: start: 20160225
  99. CHLORHEXIDINE GLUCONATE [Concomitant]
     Active Substance: CHLORHEXIDINE GLUCONATE
     Dosage: 0.2 PERCENT, QD
     Route: 048
     Dates: start: 20160225
  100. CHLORHEXIDINE GLUCONATE [Concomitant]
     Active Substance: CHLORHEXIDINE GLUCONATE
     Indication: Product used for unknown indication
     Dosage: 0.2 %, (MOUTH WASH) EVERY 0.25 DAY (PHARMACEUTICAL DOSE FORM: 135)
     Route: 048
  101. CHLORHEXIDINE GLUCONATE [Concomitant]
     Active Substance: CHLORHEXIDINE GLUCONATE
     Dosage: 0.8 PERCENT, QD (0.2 PERCENT 0.25 DAY)
     Route: 048
     Dates: start: 20160225
  102. CHLORHEXIDINE GLUCONATE [Concomitant]
     Active Substance: CHLORHEXIDINE GLUCONATE
     Dosage: 0.2 PERCENT EVERY 0.25 DAY (MOUTHWASH)
     Route: 048
     Dates: start: 20160225
  103. CHLORHEXIDINE GLUCONATE [Concomitant]
     Active Substance: CHLORHEXIDINE GLUCONATE
     Dosage: 0.2 %, (MOUTH WEVERY 0.25 DAYASH)
     Route: 048
     Dates: start: 20160225
  104. DOCUSATE SODIUM [Concomitant]
     Active Substance: DOCUSATE SODIUM
     Dosage: 200 MG, EVERY 0.5DAY
     Route: 048
  105. DOCUSATE SODIUM [Concomitant]
     Active Substance: DOCUSATE SODIUM
     Dosage: 400 MILLIGRAM, QD
     Route: 048
  106. DOCUSATE SODIUM [Concomitant]
     Active Substance: DOCUSATE SODIUM
     Dosage: UNK, UNK
  107. DOCUSATE SODIUM [Concomitant]
     Active Substance: DOCUSATE SODIUM
     Dosage: UNK, UNK
  108. DOCUSATE SODIUM [Concomitant]
     Active Substance: DOCUSATE SODIUM
     Indication: Product used for unknown indication
     Dosage: 200 MILLIGRAM, TWO TIMES A DAY (400 MILLIGRAM, ONCE A DAY) (PHARMACEUTICAL DOSE FORM: 5)
     Route: 048
  109. DOCUSATE SODIUM [Concomitant]
     Active Substance: DOCUSATE SODIUM
     Dosage: 200 MG EVERY 0.5 DAY
     Route: 048
  110. ZOPICLONE [Concomitant]
     Active Substance: ZOPICLONE
     Dosage: 3.75 MILLIGRAM, QD
     Route: 048
     Dates: start: 20160217
  111. ZOPICLONE [Concomitant]
     Active Substance: ZOPICLONE
     Indication: Product used for unknown indication
     Dosage: 3.75 MILLIGRAM, QD(PHARMACEUTICAL DOSE FORM: 245)
     Route: 048
     Dates: start: 20160217
  112. ZOPICLONE [Concomitant]
     Active Substance: ZOPICLONE
     Dosage: 3.75 MILLIGRAM, QD
     Route: 048
     Dates: start: 20160217
  113. METFORMIN [Concomitant]
     Active Substance: METFORMIN HYDROCHLORIDE
     Dosage: 2000 MILLIGRAM, QD (DOSE FORM: 245))
     Route: 048
  114. METFORMIN [Concomitant]
     Active Substance: METFORMIN HYDROCHLORIDE
     Dosage: UNK
  115. METFORMIN [Concomitant]
     Active Substance: METFORMIN HYDROCHLORIDE
     Dosage: UNK
  116. METFORMIN [Concomitant]
     Active Substance: METFORMIN HYDROCHLORIDE
     Indication: Product used for unknown indication
     Dosage: 2000 MILLIGRAM, QD (PHARMACEUTICAL DOSAGE FORM: 245)
     Route: 048
  117. METFORMIN [Concomitant]
     Active Substance: METFORMIN HYDROCHLORIDE
     Dosage: UNK UNK, UNK
  118. METFORMIN [Concomitant]
     Active Substance: METFORMIN HYDROCHLORIDE
     Dosage: UNK UNK, UNK
  119. METFORMIN [Concomitant]
     Active Substance: METFORMIN HYDROCHLORIDE
     Dosage: 2000 MILLIGRAM, ONCE A DAY (PHARMACEUTICAL DOSAGE F ORM: 245)
     Route: 048
  120. METFORMIN [Concomitant]
     Active Substance: METFORMIN HYDROCHLORIDE
     Dosage: 1000 MILLIGRAM EVERY 0.5 DAY(PHARMACEUTICAL DOSAGE FORM: 245)
     Route: 065
  121. METFORMIN [Concomitant]
     Active Substance: METFORMIN HYDROCHLORIDE
     Dosage: 1000 MILLIGRAM
     Route: 065
  122. POTASSIUM BICARBONATE;SODIUM BICARBONATE;SODIUM PHOSPHATE MONOBASIC (A [Concomitant]
     Indication: Hypophosphataemia
     Dosage: 2 TAB, BID
     Route: 048
     Dates: start: 20190611, end: 20190614
  123. BENZYDAMINE HYDROCHLORIDE [Concomitant]
     Active Substance: BENZYDAMINE HYDROCHLORIDE
     Indication: Glossodynia
     Dosage: UNK, UNK
  124. BENZYDAMINE HYDROCHLORIDE [Concomitant]
     Active Substance: BENZYDAMINE HYDROCHLORIDE
     Dosage: 5 MILLILITER
     Route: 061
     Dates: start: 20190606, end: 20190705
  125. BUDESONIDE [Concomitant]
     Active Substance: BUDESONIDE
     Dosage: 9 MILLIGRAM, QD
     Route: 048
     Dates: start: 20190403, end: 20190523
  126. BUDESONIDE [Concomitant]
     Active Substance: BUDESONIDE
     Indication: Product used for unknown indication
     Dosage: 9 MILLIGRAM, QD (PHARMACEUTICAL DOSE FORM: 245)
     Route: 048
     Dates: start: 20190403, end: 20190523
  127. BUDESONIDE [Concomitant]
     Active Substance: BUDESONIDE
     Dosage: 9 MG, DAILY (PHARMACEUTICAL DOSE FORM: 245)
     Route: 048
     Dates: start: 20190403
  128. GLICLAZIDE [Concomitant]
     Active Substance: GLICLAZIDE
     Indication: Product used for unknown indication
     Dosage: 80 MILLIGRAM, QD
     Route: 048
     Dates: start: 201809, end: 20190424
  129. GLICLAZIDE [Concomitant]
     Active Substance: GLICLAZIDE
     Dosage: 80 MILLIGRAM, QD
     Route: 048
     Dates: start: 20190425, end: 201905
  130. GLICLAZIDE [Concomitant]
     Active Substance: GLICLAZIDE
     Dosage: 40 MILLIGRAM, QD
     Route: 048
     Dates: start: 20190620, end: 20190705
  131. POTASSIUM CHLORIDE [Concomitant]
     Active Substance: POTASSIUM CHLORIDE
     Indication: Blood potassium decreased
     Dosage: UNK MMOL/L, AS NECESSARY, EVERY 3-4WEEKS FOR 9 CYCLES THEN 3 MONTHS
     Route: 042
     Dates: start: 20190611, end: 20190620
  132. POTASSIUM CHLORIDE [Concomitant]
     Active Substance: POTASSIUM CHLORIDE
     Dosage: UNK MMOL/L, AS NECESSARY, EVERY 3-4WEEKS FOR 9 CYCLES THEN 3 MONTS
     Route: 042
     Dates: start: 20190611, end: 20190620
  133. POTASSIUM CHLORIDE [Concomitant]
     Active Substance: POTASSIUM CHLORIDE
     Dosage: UNK
  134. POTASSIUM CHLORIDE [Concomitant]
     Active Substance: POTASSIUM CHLORIDE
     Dosage: EVERY 3-4WEEKS FOR 9 CYCLES THEN 3 MONTS
     Route: 042
     Dates: start: 20190611, end: 20190620
  135. POTASSIUM CHLORIDE [Concomitant]
     Active Substance: POTASSIUM CHLORIDE
     Dosage: 1 MMOL/L, AS NECESSARY; MMOL/L
     Route: 042
     Dates: start: 20190611, end: 20190620
  136. DENOSUMAB [Concomitant]
     Active Substance: DENOSUMAB
     Indication: Product used for unknown indication
     Dosage: 120 MG,EVERY 3-4 WEEKS
     Route: 058
     Dates: start: 20180110, end: 20190426
  137. DENOSUMAB [Concomitant]
     Active Substance: DENOSUMAB
     Dosage: 120 MG
     Route: 058
     Dates: start: 20180110
  138. DENOSUMAB [Concomitant]
     Active Substance: DENOSUMAB
     Dosage: 120 MG
     Route: 058
     Dates: start: 20180110
  139. AMLODIPINE [Concomitant]
     Active Substance: AMLODIPINE BESYLATE
     Indication: Hypertension
     Dosage: 5 MG, DAILY
     Route: 048
  140. AMLODIPINE [Concomitant]
     Active Substance: AMLODIPINE BESYLATE
     Dosage: 5 MILLIGRAM, QD
     Route: 048
     Dates: start: 20180915, end: 20190529
  141. AMLODIPINE [Concomitant]
     Active Substance: AMLODIPINE BESYLATE
     Dosage: 5 MILLIGRAM, QD
     Route: 048
  142. TRIMETHOPRIM [Concomitant]
     Active Substance: TRIMETHOPRIM
     Indication: Urinary tract infection
     Dosage: UNK
     Route: 048
     Dates: start: 20190412, end: 20190414
  143. TRIMETHOPRIM [Concomitant]
     Active Substance: TRIMETHOPRIM
     Indication: Urinary tract infection
     Dosage: UNK
     Route: 048
     Dates: start: 20190412, end: 20190414
  144. POTASSIUM BICARBONATE\POTASSIUM CHLORIDE [Concomitant]
     Active Substance: POTASSIUM BICARBONATE\POTASSIUM CHLORIDE
     Dosage: UNK MMOL/L, AS NECESSARY, EVERY 3-4WEEKS FOR 9 CYCLES THEN 3 MONTHS(DOSAGE FORM 59)
     Route: 048
     Dates: start: 20160322, end: 20160326
  145. POTASSIUM BICARBONATE\POTASSIUM CHLORIDE [Concomitant]
     Active Substance: POTASSIUM BICARBONATE\POTASSIUM CHLORIDE
     Indication: Product used for unknown indication
     Dosage: UNK, 2, ONCE A DAY (PHARMACEUTICAL DOSAGE FORM: 59)
     Route: 048
     Dates: start: 20160322, end: 20160326
  146. POTASSIUM BICARBONATE\POTASSIUM CHLORIDE [Concomitant]
     Active Substance: POTASSIUM BICARBONATE\POTASSIUM CHLORIDE
     Dosage: PER 0.5 DAY; EFFERVESCENT 2 TABLETS
     Route: 048
     Dates: start: 20160322, end: 20160326
  147. INSULIN HUMAN [Concomitant]
     Active Substance: INSULIN HUMAN
     Indication: Product used for unknown indication
     Dosage: UNK
     Route: 058
     Dates: start: 20190620, end: 20190705
  148. INSULIN HUMAN [Concomitant]
     Active Substance: INSULIN HUMAN
     Dosage: UNK
     Route: 058
     Dates: start: 20190620
  149. TINZAPARIN [Concomitant]
     Active Substance: TINZAPARIN
     Indication: Product used for unknown indication
     Dosage: 11000 UNIT, QD
     Route: 058
     Dates: start: 20180915, end: 20181128
  150. MESALAMINE [Concomitant]
     Active Substance: MESALAMINE
     Indication: Gastrointestinal motility disorder
     Dosage: 800 MILLIGRAM, TID
     Route: 048
     Dates: start: 20170523, end: 2017
  151. MESALAMINE [Concomitant]
     Active Substance: MESALAMINE
     Indication: Gastrointestinal motility disorder
     Dosage: UNK
  152. MESALAMINE [Concomitant]
     Active Substance: MESALAMINE
     Indication: Gastrointestinal motility disorder
     Dosage: 800 MILLIGRAM, 3 TIMES A DAY (2400 MILLIGRAM, ONCE A DAY) (PHARMACEUTICAL DOSE FORM: 245)
     Route: 048
     Dates: start: 20170523
  153. MESALAMINE [Concomitant]
     Active Substance: MESALAMINE
     Dosage: 800 MG
     Route: 048
     Dates: start: 20170523, end: 2017
  154. MESALAMINE [Concomitant]
     Active Substance: MESALAMINE
     Dosage: 800 MG EVERY 0.33 DAY
     Route: 048
     Dates: start: 20170523, end: 2017
  155. PHOSPHATE SANDOZ EFFERVESCENT [Concomitant]
     Indication: Blood phosphorus decreased
     Dosage: UNK
     Route: 048
     Dates: start: 20190423, end: 20190425
  156. PHOSPHATE SANDOZ EFFERVESCENT [Concomitant]
     Indication: Hypophosphataemia
     Dosage: 2 DOSAGE FORM
     Route: 048
     Dates: start: 20190611, end: 20190614
  157. PHOSPHATE SANDOZ EFFERVESCENT [Concomitant]
     Dosage: 2 DOSAGE FORM
     Route: 048
     Dates: start: 20190618, end: 20190625
  158. PHOSPHATE SANDOZ EFFERVESCENT [Concomitant]
     Dosage: 2 DF (DOSE FORM: 245)
     Route: 048
     Dates: start: 20190611, end: 20190614
  159. PHOSPHATE SANDOZ EFFERVESCENT [Concomitant]
     Dosage: 2 DF
     Route: 048
     Dates: start: 20190618, end: 20190625
  160. SODIUM PHOSPHATE, MONOBASIC, ANHYDROUS [Concomitant]
     Active Substance: SODIUM PHOSPHATE, MONOBASIC, ANHYDROUS
     Indication: Blood phosphorus decreased
     Dosage: UNK (PHARMACEUTICAL DOSAGE FORM: 59)
     Route: 048
     Dates: start: 20190423, end: 20190425
  161. SODIUM PHOSPHATE, MONOBASIC, ANHYDROUS [Concomitant]
     Active Substance: SODIUM PHOSPHATE, MONOBASIC, ANHYDROUS
     Dosage: 2 DOSAGE FORM (PHARMACEUTICAL DOSE FORM: 245 AND 59)
     Route: 048
     Dates: start: 20190618, end: 20190625
  162. SODIUM PHOSPHATE, MONOBASIC, ANHYDROUS [Concomitant]
     Active Substance: SODIUM PHOSPHATE, MONOBASIC, ANHYDROUS
     Dosage: 2 DOSAGE FORM (PHARMACEUTICAL DOSE FORM: 245 AND 59)
     Route: 048
     Dates: start: 20190611, end: 20190614
  163. SODIUM PHOSPHATE, MONOBASIC, ANHYDROUS [Concomitant]
     Active Substance: SODIUM PHOSPHATE, MONOBASIC, ANHYDROUS
     Dosage: 2 DF
     Route: 048
     Dates: start: 20190618, end: 20190625
  164. SODIUM PHOSPHATE, MONOBASIC, ANHYDROUS [Concomitant]
     Active Substance: SODIUM PHOSPHATE, MONOBASIC, ANHYDROUS
     Dosage: 2 DF
     Route: 048
     Dates: start: 20190611, end: 20190614
  165. SODIUM PHOSPHATE, MONOBASIC, ANHYDROUS [Concomitant]
     Active Substance: SODIUM PHOSPHATE, MONOBASIC, ANHYDROUS
     Dosage: UNK
     Route: 048
     Dates: start: 20190423, end: 20190425
  166. LINAGLIPTIN [Concomitant]
     Active Substance: LINAGLIPTIN
     Indication: Product used for unknown indication
     Dosage: 5 MILLIGRAM, QD
     Route: 048
     Dates: start: 201809, end: 201905
  167. CINACALCET [Concomitant]
     Active Substance: CINACALCET
     Indication: Hypercalcaemia of malignancy
     Dosage: 30 MILLIGRAM, QD
     Route: 048
     Dates: start: 20190413
  168. CINACALCET [Concomitant]
     Active Substance: CINACALCET
     Indication: Hypercalcaemia of malignancy
     Dosage: 30 MILLIGRAM, QD (PHARMACEUTICAL DOSE FORM: 245)
     Route: 048
     Dates: start: 20190413
  169. CINACALCET [Concomitant]
     Active Substance: CINACALCET
     Dosage: 30MG, (DOSE FORM: 245)
     Route: 048
     Dates: start: 20190413
  170. MAGNESIUM GLYCEROPHOSPHATE [Concomitant]
     Active Substance: MAGNESIUM GLYCEROPHOSPHATE
     Indication: Hypomagnesaemia
     Dosage: 12 MILLIMOLE, QD
     Route: 048
     Dates: start: 20160526, end: 20160530
  171. MAGNESIUM GLYCEROPHOSPHATE [Concomitant]
     Active Substance: MAGNESIUM GLYCEROPHOSPHATE
     Dosage: UNK
  172. MAGNESIUM GLYCEROPHOSPHATE [Concomitant]
     Active Substance: MAGNESIUM GLYCEROPHOSPHATE
     Dosage: 4 MMOL EVERY 0.33 DAY
     Route: 048
     Dates: start: 20160526, end: 20160530
  173. CHLOROCRESOL [Concomitant]
     Active Substance: CHLOROCRESOL
     Indication: Rash pruritic
     Dosage: UNK
  174. CHLOROCRESOL [Concomitant]
     Active Substance: CHLOROCRESOL
     Dosage: UNK
     Route: 065
  175. CHLOROCRESOL [Concomitant]
     Active Substance: CHLOROCRESOL
     Dosage: UNK
     Route: 048
  176. POTASSIUM BICARBONATE [Concomitant]
     Active Substance: POTASSIUM BICARBONATE
     Indication: Hypophosphataemia
     Dosage: 2 TABLETS FOR 0.33/DAY
     Route: 048
     Dates: start: 20190611, end: 20190614
  177. POTASSIUM BICARBONATE [Concomitant]
     Active Substance: POTASSIUM BICARBONATE
     Dosage: 2 TAB, TID
     Route: 048
     Dates: start: 20190611, end: 20190614
  178. SODIUM PHOSPHATE, MONOBASIC [Concomitant]
     Active Substance: SODIUM PHOSPHATE, MONOBASIC
     Indication: Hypophosphataemia
     Dosage: 2 DF, 3X/DAY (2 TABLETS ) (DOSE FORM: 245)
     Route: 048
     Dates: start: 20190611, end: 20190614
  179. SODIUM BICARBONATE [Concomitant]
     Active Substance: SODIUM BICARBONATE
     Indication: Hypophosphataemia
     Dosage: 2 TABLETS FOR 0.33/DAY (DOSE FORM: 245)
     Route: 048
     Dates: start: 20190611, end: 20190614
  180. SODIUM BICARBONATE [Concomitant]
     Active Substance: SODIUM BICARBONATE
     Dosage: 2 TABLETS FOR 0.33/DAY (PHARMACEUTICAL DOSGE FORM: 245)
     Route: 048
     Dates: start: 20190611, end: 20190614
  181. SODIUM BICARBONATE [Concomitant]
     Active Substance: SODIUM BICARBONATE
     Dosage: UNK
  182. SODIUM CHLORIDE [Concomitant]
     Active Substance: SODIUM CHLORIDE
     Indication: Product used for unknown indication
     Dosage: UNK
  183. SODIUM CHLORIDE [Concomitant]
     Active Substance: SODIUM CHLORIDE
     Dosage: UNK
  184. SODIUM CHLORIDE [Concomitant]
     Active Substance: SODIUM CHLORIDE
     Dosage: 0.9 PERCENT
     Route: 042
     Dates: start: 20190508, end: 20190510
  185. PHOSPHATE-SANDOZ (UNITED KINGDOM) [Concomitant]
     Indication: Hypophosphataemia
     Dosage: 2 TABLETS PER 0.33 DAY
     Route: 048
     Dates: start: 20190611, end: 20190614
  186. ACTRAPID [Concomitant]
     Active Substance: INSULIN HUMAN
     Dosage: UNK
     Route: 058
     Dates: start: 20190620, end: 20190705
  187. TRAMADOL HYDROCHLORIDE [Concomitant]
     Active Substance: TRAMADOL HYDROCHLORIDE
     Dosage: 50 MG EVERY 0.25 DAY
     Route: 048
     Dates: start: 20160217

REACTIONS (18)
  - Disease progression [Fatal]
  - Pulmonary embolism [Fatal]
  - Weight decreased [Fatal]
  - Condition aggravated [Fatal]
  - Off label use [Fatal]
  - Acute kidney injury [Recovered/Resolved]
  - Rectal haemorrhage [Not Recovered/Not Resolved]
  - Cholelithiasis [Not Recovered/Not Resolved]
  - Hypomagnesaemia [Recovered/Resolved]
  - Back pain [Not Recovered/Not Resolved]
  - Vomiting [Recovered/Resolved]
  - Diarrhoea [Recovered/Resolved]
  - Weight decreased [Recovered/Resolved]
  - Decreased appetite [Not Recovered/Not Resolved]
  - Rash pruritic [Recovered/Resolved]
  - Urinary tract infection [Recovered/Resolved]
  - Diarrhoea [Recovered/Resolved]
  - Diarrhoea [Recovered/Resolved]

NARRATIVE: CASE EVENT DATE: 20160323
